FAERS Safety Report 13664782 (Version 2)
Quarter: 2017Q3

REPORT INFORMATION
  Report Type: Spontaneous
  Country: US (occurrence: US)
  Receive Date: 20170619
  Receipt Date: 20170706
  Transmission Date: 20171127
  Serious: Yes (Other)
  Sender: FDA-Public Use
  Company Number: US-009507513-1706USA004955

PATIENT
  Age: 20 Year
  Sex: Male

DRUGS (2)
  1. PROPECIA [Suspect]
     Active Substance: FINASTERIDE
     Indication: ALOPECIA
     Dosage: ONE TABLET (1 MG) ONCE DAILY
     Route: 048
     Dates: start: 2015, end: 201705
  2. ROGAINE [Concomitant]
     Active Substance: MINOXIDIL
     Dosage: UNK

REACTIONS (2)
  - Hyperhidrosis [Not Recovered/Not Resolved]
  - Rectal cancer [Recovered/Resolved]

NARRATIVE: CASE EVENT DATE: 2015
